FAERS Safety Report 7267697-2 (Version None)
Quarter: 2011Q1

REPORT INFORMATION
  Report Type: 
  Country: None (occurrence: None)
  Receive Date: 20110201
  Receipt Date: 20110121
  Transmission Date: 20110831
  Serious: Yes (Death)
  Sender: FDA-Public Use
  Company Number: FR-ROCHE-752219

PATIENT
  Sex: Female
  Weight: 70 kg

DRUGS (6)
  1. OXALIPLATINE [Concomitant]
     Indication: COLORECTAL CANCER METASTATIC
     Route: 042
     Dates: start: 20101115, end: 20101227
  2. METHYLPREDNISOLONE [Concomitant]
     Indication: PREMEDICATION
     Route: 042
  3. ZOPHREN [Concomitant]
     Indication: PREMEDICATION
     Route: 042
  4. AVASTIN [Suspect]
     Indication: COLON CANCER METASTATIC
     Route: 042
     Dates: start: 20101115, end: 20101227
  5. FOLFOX REGIMEN [Concomitant]
  6. FLUOROURACIL [Concomitant]
     Indication: COLORECTAL CANCER METASTATIC
     Route: 042
     Dates: start: 20101115, end: 20101227

REACTIONS (5)
  - VOMITING [None]
  - DIARRHOEA [None]
  - NAUSEA [None]
  - PULMONARY EMBOLISM [None]
  - BLOOD PRESSURE DECREASED [None]
